FAERS Safety Report 7879094-7 (Version None)
Quarter: 2011Q4

REPORT INFORMATION
  Report Type: 
  Country: None (occurrence: None)
  Receive Date: 20111101
  Receipt Date: 20111027
  Transmission Date: 20120403
  Serious: Yes (Death, Hospitalization)
  Sender: FDA-Public Use
  Company Number: PHHY2011BR95356

PATIENT
  Age: 96 Year
  Sex: Female

DRUGS (4)
  1. DIOVAN [Suspect]
     Indication: ARRHYTHMIA
     Dosage: 1 DF (160 MG VALSARTAN), DAILY
  2. CARDIZEM [Concomitant]
     Indication: ARRHYTHMIA
  3. DRAMIN [Concomitant]
     Indication: LABYRINTHITIS
  4. VITAMINS NOS [Concomitant]
     Indication: OSTEOPOROSIS

REACTIONS (1)
  - CEREBRAL ISCHAEMIA [None]
